FAERS Safety Report 8389532 (Version 2)
Quarter: 2015Q1

REPORT INFORMATION
  Report Type: Report from Study
  Country: US (occurrence: US)
  Receive Date: 20120203
  Receipt Date: 20150303
  Transmission Date: 20150721
  Serious: Yes (Death, Hospitalization)
  Sender: FDA-Public Use
  Company Number: US-ROCHE-1035093

PATIENT
  Sex: Male
  Weight: 81.3 kg

DRUGS (18)
  1. LEXAPRO [Concomitant]
     Active Substance: ESCITALOPRAM OXALATE
  2. XELODA [Suspect]
     Active Substance: CAPECITABINE
     Indication: BRAIN NEOPLASM
     Route: 065
     Dates: start: 20070321
  3. DEXTROSE. [Concomitant]
     Active Substance: DEXTROSE
     Route: 065
  4. MATULANE [Concomitant]
     Active Substance: PROCARBAZINE HYDROCHLORIDE
  5. NORMAL SALINE [Concomitant]
     Active Substance: SODIUM CHLORIDE
     Route: 065
  6. NEUPOGEN [Concomitant]
     Active Substance: FILGRASTIM
     Route: 065
  7. PALONOSETRON HYDROCHLORIDE [Concomitant]
     Active Substance: PALONOSETRON HYDROCHLORIDE
     Route: 065
  8. ATIVAN [Concomitant]
     Active Substance: LORAZEPAM
  9. AVASTIN [Suspect]
     Active Substance: BEVACIZUMAB
     Indication: BRAIN NEOPLASM
     Route: 042
     Dates: start: 20070918
  10. ATROPINE SULFATE. [Concomitant]
     Active Substance: ATROPINE SULFATE
     Route: 042
  11. TYLENOL [Concomitant]
     Active Substance: ACETAMINOPHEN
  12. ZOFRAN [Concomitant]
     Active Substance: ONDANSETRON HYDROCHLORIDE
     Route: 048
  13. CELEBREX [Concomitant]
     Active Substance: CELECOXIB
  14. LOMUSTINE. [Concomitant]
     Active Substance: LOMUSTINE
  15. VALTREX [Concomitant]
     Active Substance: VALACYCLOVIR HYDROCHLORIDE
  16. PROCARBAZINE [Concomitant]
     Active Substance: PROCARBAZINE
     Route: 065
  17. IRINOTECAN HYDROCHLORIDE. [Concomitant]
     Active Substance: IRINOTECAN HYDROCHLORIDE
     Route: 042
  18. 6-THIOGUANINE [Concomitant]
     Active Substance: THIOGUANINE

REACTIONS (34)
  - Balance disorder [Unknown]
  - Fatigue [Unknown]
  - Bone pain [Unknown]
  - Constipation [Unknown]
  - Disease progression [Unknown]
  - Muscular weakness [Unknown]
  - Vertigo [Unknown]
  - Visual impairment [Unknown]
  - Headache [Unknown]
  - Skin abrasion [Unknown]
  - Amnesia [Unknown]
  - Tremor [Unknown]
  - Fall [Unknown]
  - Death [Fatal]
  - Cough [Unknown]
  - Motor dysfunction [Unknown]
  - Nausea [Unknown]
  - Nasal dryness [Unknown]
  - Oropharyngeal pain [Unknown]
  - Tenderness [Unknown]
  - Abdominal pain [Unknown]
  - Eyelid ptosis [Unknown]
  - Off label use [Unknown]
  - Vomiting [Unknown]
  - Tinnitus [Unknown]
  - Night sweats [Unknown]
  - Pain in extremity [Unknown]
  - Arthralgia [Unknown]
  - Contusion [Unknown]
  - Dizziness [Unknown]
  - Abdominal discomfort [Unknown]
  - Decreased appetite [Unknown]
  - Dysarthria [Unknown]
  - Neutropenia [Unknown]
